FAERS Safety Report 22944924 (Version 2)
Quarter: 2024Q3

REPORT INFORMATION
  Report Type: Report from Study
  Country: US (occurrence: US)
  Receive Date: 20230914
  Receipt Date: 20240830
  Transmission Date: 20241017
  Serious: Yes (Other)
  Sender: NOVARTIS
  Company Number: US-SANDOZ-SDZ2023US026825

PATIENT
  Age: 80 Year
  Sex: Female
  Weight: 44.4 kg

DRUGS (19)
  1. ENTRESTO [Suspect]
     Active Substance: SACUBITRIL\VALSARTAN
     Indication: Product used for unknown indication
     Dosage: 1 DOSAGE FORM (24/26 MG)
     Route: 065
     Dates: start: 20211015
  2. ENTRESTO [Suspect]
     Active Substance: SACUBITRIL\VALSARTAN
     Dosage: 1 DOSAGE FORM, BID (49/51MG)
     Route: 048
     Dates: start: 20230602
  3. OMEPRAZOLE [Suspect]
     Active Substance: OMEPRAZOLE
     Indication: Product used for unknown indication
     Dosage: 80 MG, QD (40 MG, BID)
     Route: 065
     Dates: start: 20230613
  4. PANTOPRAZOLE [Suspect]
     Active Substance: PANTOPRAZOLE
     Indication: Product used for unknown indication
     Dosage: 1 DOSAGE FORM, QD (DELAYED RELEASE;)
     Route: 048
  5. AMIODARONE [Suspect]
     Active Substance: AMIODARONE
     Indication: Product used for unknown indication
     Dosage: 100 MG, QD
     Route: 048
     Dates: start: 20210820
  6. AMIODARONE [Suspect]
     Active Substance: AMIODARONE
     Dosage: 200 MG, QD
     Route: 048
  7. AMOXICILLIN [Suspect]
     Active Substance: AMOXICILLIN
     Indication: Product used for unknown indication
     Dosage: 2 DOSAGE FORM, BID
     Route: 048
  8. SIMVASTATIN [Suspect]
     Active Substance: SIMVASTATIN
     Indication: Product used for unknown indication
     Dosage: 10 MG, QD AT BED TIME
     Route: 048
  9. BUMETANIDE [Suspect]
     Active Substance: BUMETANIDE
     Indication: Product used for unknown indication
     Dosage: 1 MG
     Route: 048
  10. DORZOLAMIDE HYDROCHLORIDE [Suspect]
     Active Substance: DORZOLAMIDE HYDROCHLORIDE
     Indication: Product used for unknown indication
     Dosage: 1 DOSAGE FORM, BID (OPHTHALMIC SOLUTION; I GTT BID OU) (2*10ML)
     Route: 065
  11. ELIQUIS [Suspect]
     Active Substance: APIXABAN
     Indication: Product used for unknown indication
     Dosage: 1 DOSAGE FORM, BID
     Route: 048
     Dates: start: 20210519
  12. FARXIGA [Suspect]
     Active Substance: DAPAGLIFLOZIN PROPANEDIOL
     Indication: Product used for unknown indication
     Dosage: 1 DOSAGE FORM, QD
     Route: 048
     Dates: start: 20220718
  13. RIFABUTIN [Suspect]
     Active Substance: RIFABUTIN
     Indication: Product used for unknown indication
     Dosage: 150 MG, QD (FOR 10 DAYS)
     Route: 048
  14. SPIRONOLACTONE [Suspect]
     Active Substance: SPIRONOLACTONE
     Indication: Product used for unknown indication
     Dosage: 1 DOSAGE FORM, QD
     Route: 048
     Dates: start: 20230629
  15. SUCRALFATE [Suspect]
     Active Substance: SUCRALFATE
     Indication: Product used for unknown indication
     Dosage: 1 DOSAGE FORM, QID (BEFORE MEALS AND AT BEDTIME)
     Route: 048
     Dates: start: 20211207
  16. CARAFATE [Concomitant]
     Active Substance: SUCRALFATE
     Indication: Product used for unknown indication
     Dosage: UNK
     Route: 065
  17. FENTANYL [Concomitant]
     Active Substance: FENTANYL\FENTANYL CITRATE
     Indication: Product used for unknown indication
     Dosage: 12.5 UG (14:40:04)
     Route: 042
  18. VERSED [Concomitant]
     Active Substance: MIDAZOLAM HYDROCHLORIDE
     Indication: Product used for unknown indication
     Dosage: 0.6 MG (14:39:56)
     Route: 042
  19. SODIUM CHLORIDE [Concomitant]
     Active Substance: SODIUM CHLORIDE
     Indication: Product used for unknown indication
     Dosage: 30 ML, QH (14:3533)
     Route: 042

REACTIONS (47)
  - Cardiac failure [Unknown]
  - Gastric ulcer [Unknown]
  - Atrial fibrillation [Unknown]
  - Bronchiectasis [Unknown]
  - Acute kidney injury [Unknown]
  - Hyperkalaemia [Recovered/Resolved]
  - Right ventricular failure [Unknown]
  - Multiple sclerosis [Unknown]
  - Open angle glaucoma [Unknown]
  - Cardiomyopathy [Unknown]
  - Tricuspid valve incompetence [Unknown]
  - Pelvic fracture [Unknown]
  - Myocardial infarction [Unknown]
  - Cardiac dysfunction [Unknown]
  - Fatigue [Unknown]
  - Abdominal pain [Unknown]
  - Anaemia [Unknown]
  - Coronary artery disease [Unknown]
  - Cough [Unknown]
  - Gastrooesophageal reflux disease [Unknown]
  - Hypokinesia [Unknown]
  - Dyspnoea [Unknown]
  - General physical health deterioration [Unknown]
  - Gout [Unknown]
  - Helicobacter infection [Unknown]
  - Hyperlipidaemia [Unknown]
  - Hypertension [Unknown]
  - Left ventricular hypertrophy [Unknown]
  - Memory impairment [Unknown]
  - Skeletal injury [Unknown]
  - Pulmonary mass [Unknown]
  - Limb injury [Unknown]
  - Vitreous floaters [Unknown]
  - Weight decreased [Unknown]
  - Chest pain [Recovering/Resolving]
  - Weight increased [Recovering/Resolving]
  - Accidental overdose [Unknown]
  - Dyspnoea exertional [Recovering/Resolving]
  - Fall [Unknown]
  - Dizziness [Unknown]
  - Renal disorder [Unknown]
  - Helicobacter gastritis [Unknown]
  - Back pain [Recovering/Resolving]
  - Rib fracture [Unknown]
  - Oedema peripheral [Recovered/Resolved]
  - Hypervolaemia [Unknown]
  - Product administration error [Unknown]

NARRATIVE: CASE EVENT DATE: 20230309
